FAERS Safety Report 6541176-X (Version None)
Quarter: 2010Q1

REPORT INFORMATION
  Report Type: 
  Country: None (occurrence: None)
  Receive Date: 20100118
  Receipt Date: 20100106
  Transmission Date: 20100710
  Serious: Yes (Hospitalization)
  Sender: FDA-Public Use
  Company Number: B0557746A

PATIENT
  Age: 9 Year
  Sex: Male

DRUGS (4)
  1. LAMOTRIGINE [Suspect]
     Indication: CONVULSION
     Route: 065
  2. VALPROIC ACID [Suspect]
     Indication: CONVULSION
     Route: 065
  3. CLOBAZAM [Suspect]
     Indication: CONVULSION
     Route: 065
  4. ETHOSUXIMIDE [Suspect]
     Indication: CONVULSION
     Route: 065

REACTIONS (20)
  - ANGIOEDEMA [None]
  - BLEPHAROSPASM [None]
  - BLISTER [None]
  - BRADYCARDIA [None]
  - BRAIN STEM SYNDROME [None]
  - COMA [None]
  - CONDITION AGGRAVATED [None]
  - CONVULSION [None]
  - DEPRESSED LEVEL OF CONSCIOUSNESS [None]
  - DRUG INEFFECTIVE [None]
  - DRUG INTERACTION [None]
  - DRUG TOXICITY [None]
  - ERYTHEMA [None]
  - HYPOTENSION [None]
  - KLEBSIELLA INFECTION [None]
  - LIVER FUNCTION TEST ABNORMAL [None]
  - NECROSIS [None]
  - PNEUMONIA [None]
  - SWEAT GLAND DISORDER [None]
  - URTICARIA [None]
